FAERS Safety Report 23852476 (Version 1)
Quarter: 2024Q2

REPORT INFORMATION
  Report Type: Spontaneous
  Country: DE (occurrence: DE)
  Receive Date: 20240514
  Receipt Date: 20240514
  Transmission Date: 20240716
  Serious: Yes (Other)
  Sender: FDA-Public Use
  Company Number: DE-PFIZER INC-2006034952

PATIENT
  Age: 15 Year
  Sex: Female
  Weight: 46 kg

DRUGS (11)
  1. DOXYCYCLINE HYCLATE [Suspect]
     Active Substance: DOXYCYCLINE HYCLATE
     Dosage: 500 MG, 1X/DAY
     Route: 048
     Dates: start: 20060304, end: 20060304
  2. CETIRIZINE HCL [Suspect]
     Active Substance: CETIRIZINE HYDROCHLORIDE
     Dosage: 80 MG, 1X/DAY (8 DOSAGE FORMS/TABLETS)
     Route: 048
     Dates: start: 20060304, end: 20060304
  3. AMOXICILLIN [Suspect]
     Active Substance: AMOXICILLIN
     Dosage: 5250 MG, 1X/DAY (7 DF/TABLETS)
     Route: 048
     Dates: start: 20060304, end: 20060304
  4. NAPROXEN SODIUM [Suspect]
     Active Substance: NAPROXEN\NAPROXEN SODIUM
     Dosage: 1250 MG, 1X/DAY (5 DOSAGE FORMS)
     Route: 048
     Dates: start: 20060304, end: 20060304
  5. IBUPROFEN [Suspect]
     Active Substance: IBUPROFEN
     Indication: Ill-defined disorder
     Dosage: 2000 MG, 1X/DAY
     Route: 048
     Dates: start: 20060304, end: 20060304
  6. ZYRTEC [Suspect]
     Active Substance: CETIRIZINE HYDROCHLORIDE
     Indication: Ill-defined disorder
     Dosage: 30 MG, 1X/DAY
     Route: 048
     Dates: start: 20060304, end: 20060304
  7. AMBROXOL [Suspect]
     Active Substance: AMBROXOL
     Dosage: 9 TABLETS
     Route: 048
     Dates: start: 20060304, end: 20060304
  8. IRON [Suspect]
     Active Substance: IRON
     Dosage: 2 DF
     Route: 048
     Dates: start: 20060304, end: 20060304
  9. ACETAMINOPHEN [Suspect]
     Active Substance: ACETAMINOPHEN
     Dosage: 2500 MG (5 DF)
     Route: 048
     Dates: start: 20060304, end: 20060304
  10. DIETARY SUPPLEMENT\HERBALS [Suspect]
     Active Substance: DIETARY SUPPLEMENT\HERBALS
     Dosage: 3 DF (3 DRAGEES)
     Route: 048
     Dates: start: 20060304, end: 20060304
  11. .ALPHA.-TOCOPHEROL\FISH OIL [Suspect]
     Active Substance: .ALPHA.-TOCOPHEROL\FISH OIL
     Dosage: 3 DF
     Route: 048
     Dates: start: 20060304, end: 20060304

REACTIONS (3)
  - Suicide attempt [Unknown]
  - Intentional overdose [Unknown]
  - Dizziness [Unknown]

NARRATIVE: CASE EVENT DATE: 20060304
